FAERS Safety Report 17014622 (Version 6)
Quarter: 2022Q2

REPORT INFORMATION
  Report Type: Report from Study
  Country: GB (occurrence: GB)
  Receive Date: 20191111
  Receipt Date: 20220517
  Transmission Date: 20220721
  Serious: Yes (Hospitalization, Other)
  Sender: FDA-Public Use
  Company Number: GB-EMA-DD-20191028-ABDUL_J-173044

PATIENT
  Age: 45 Year
  Sex: Female

DRUGS (34)
  1. DOCETAXEL [Suspect]
     Active Substance: DOCETAXEL
     Indication: Breast cancer metastatic
     Dosage: 120 MG, Q3W
     Route: 042
     Dates: start: 20150804, end: 20151117
  2. DOCETAXEL [Suspect]
     Active Substance: DOCETAXEL
     Dosage: 600 MG, Q3W
     Route: 042
     Dates: start: 20151217, end: 20160308
  3. TRASTUZUMAB [Suspect]
     Active Substance: TRASTUZUMAB
     Indication: Breast cancer metastatic
     Dosage: 483 MG, QD LOADING DOSE
     Route: 042
     Dates: start: 20150803, end: 20150803
  4. TRASTUZUMAB [Suspect]
     Active Substance: TRASTUZUMAB
     Dosage: 600 MG, Q3W
     Route: 042
     Dates: start: 20150825, end: 20151117
  5. TRASTUZUMAB [Suspect]
     Active Substance: TRASTUZUMAB
     Dosage: 600 MG, QD LOADING DOSE
     Route: 042
     Dates: start: 20151217, end: 20160308
  6. TRASTUZUMAB [Suspect]
     Active Substance: TRASTUZUMAB
     Dosage: 600 MG, TIW
     Route: 042
     Dates: start: 20160623
  7. EXEMESTANE [Suspect]
     Active Substance: EXEMESTANE
     Indication: Breast cancer metastatic
     Dosage: 25 MG, QD
     Route: 048
     Dates: start: 20150518
  8. PERTUZUMAB [Suspect]
     Active Substance: PERTUZUMAB
     Indication: Breast cancer metastatic
     Dosage: 840 MG, UNK ONE CYCLE (LOADING DOSE)
     Route: 042
     Dates: start: 20150804, end: 20150804
  9. PERTUZUMAB [Suspect]
     Active Substance: PERTUZUMAB
     Dosage: 420 MG, Q3W MAINTAINANCE DOSE
     Route: 042
     Dates: start: 20150825, end: 20151117
  10. PERTUZUMAB [Suspect]
     Active Substance: PERTUZUMAB
     Dosage: 420 MG, Q3W MAINTAINANCE DOSE
     Route: 042
     Dates: start: 20151217, end: 20160308
  11. PERTUZUMAB [Suspect]
     Active Substance: PERTUZUMAB
     Dosage: 840 MG, 1X (LOADING DOSE)
     Route: 042
     Dates: start: 20160623, end: 20160623
  12. PERTUZUMAB [Suspect]
     Active Substance: PERTUZUMAB
     Dosage: 420 MG, QD MAINTENANCE DOSE
     Route: 042
     Dates: start: 20160715
  13. IBANDRONIC ACID [Suspect]
     Active Substance: IBANDRONIC ACID
     Indication: Metastases to bone
     Dosage: 50 MG, QD
     Route: 048
     Dates: start: 20150518
  14. IBANDRONATE SODIUM [Suspect]
     Active Substance: IBANDRONATE SODIUM
     Dosage: 50 MG, QD
     Route: 048
     Dates: start: 20150518
  15. TAXOTERE [Suspect]
     Active Substance: DOCETAXEL
     Indication: Breast cancer metastatic
     Dosage: 120 MG, Q3W
     Route: 042
     Dates: start: 20150814, end: 20151117
  16. HYALURONIDASE (HUMAN RECOMBINANT)\TRASTUZUMAB [Suspect]
     Active Substance: HYALURONIDASE (HUMAN RECOMBINANT)\TRASTUZUMAB
     Indication: Breast cancer metastatic
     Dosage: STOPPED
     Route: 058
  17. HYALURONIDASE (HUMAN RECOMBINANT)\TRASTUZUMAB [Suspect]
     Active Substance: HYALURONIDASE (HUMAN RECOMBINANT)\TRASTUZUMAB
     Dosage: 600 MG, Q3W MAINTAINANCE DOSE
     Route: 058
     Dates: start: 20150825, end: 20151117
  18. HYALURONIDASE (HUMAN RECOMBINANT)\TRASTUZUMAB [Suspect]
     Active Substance: HYALURONIDASE (HUMAN RECOMBINANT)\TRASTUZUMAB
     Dosage: 600 MG, Q3W
     Route: 058
     Dates: start: 20160623
  19. DEXAMETHASONE [Concomitant]
     Active Substance: DEXAMETHASONE
     Indication: Product used for unknown indication
     Dosage: FOR 3 DAYS EVERY 3 WEEKS
     Route: 048
     Dates: start: 20150803
  20. DENOSUMAB [Concomitant]
     Active Substance: DENOSUMAB
     Indication: Product used for unknown indication
     Dosage: 120 MG, QM
     Route: 058
     Dates: start: 20160127
  21. DENOSUMAB [Concomitant]
     Active Substance: DENOSUMAB
     Dosage: 3 DAYS  EVERY 3 WEEKS
     Dates: start: 20150803
  22. GENTAMICIN [Concomitant]
     Active Substance: GENTAMICIN
     Indication: Product used for unknown indication
     Dosage: UNK
  23. PIPERACILLIN SODIUM\TAZOBACTAM SODIUM [Concomitant]
     Active Substance: PIPERACILLIN SODIUM\TAZOBACTAM SODIUM
     Indication: Product used for unknown indication
     Dosage: 600 MG, Q3W
     Route: 058
     Dates: start: 20160723
  24. AMOXICILLIN\CLAVULANATE POTASSIUM [Concomitant]
     Active Substance: AMOXICILLIN\CLAVULANATE POTASSIUM
     Dosage: UNK
  25. AMOXICILLIN\CLAVULANATE POTASSIUM [Concomitant]
     Active Substance: AMOXICILLIN\CLAVULANATE POTASSIUM
     Dosage: 120 MG
     Route: 058
     Dates: start: 20160127
  26. MEROPENEM [Concomitant]
     Active Substance: MEROPENEM
     Dosage: UNK
  27. RAMIPRIL [Concomitant]
     Active Substance: RAMIPRIL
     Indication: Product used for unknown indication
     Dosage: UNK
  28. RAMIPRIL [Concomitant]
     Active Substance: RAMIPRIL
  29. ACETAMINOPHEN [Concomitant]
     Active Substance: ACETAMINOPHEN
     Indication: Product used for unknown indication
     Dosage: UNK
  30. BISOPROLOL [Concomitant]
     Active Substance: BISOPROLOL
     Indication: Product used for unknown indication
     Dosage: UNK
  31. CIPROFLOXACIN [Concomitant]
     Active Substance: CIPROFLOXACIN
     Indication: Product used for unknown indication
  32. CIPROFLOXACIN [Concomitant]
     Active Substance: CIPROFLOXACIN
  33. BENZYDAMINE HYDROCHLORIDE [Concomitant]
     Active Substance: BENZYDAMINE HYDROCHLORIDE
     Indication: Metastases to bone
  34. XGEVA [Concomitant]
     Active Substance: DENOSUMAB
     Dosage: UNK

REACTIONS (11)
  - Device related infection [Recovered/Resolved]
  - Ejection fraction decreased [Recovered/Resolved]
  - Gastrooesophageal reflux disease [Recovered/Resolved]
  - Mucosal inflammation [Recovered/Resolved]
  - Lymphoedema [Recovered/Resolved]
  - Anaemia [Recovered/Resolved]
  - Influenza like illness [Recovered/Resolved]
  - Diarrhoea [Recovered/Resolved]
  - Fatigue [Recovered/Resolved]
  - Hot flush [Unknown]
  - Off label use [Unknown]

NARRATIVE: CASE EVENT DATE: 20150801
